FAERS Safety Report 16823725 (Version 1)
Quarter: 2019Q3

REPORT INFORMATION
  Report Type: Spontaneous
  Country: US (occurrence: US)
  Receive Date: 20190918
  Receipt Date: 20190918
  Transmission Date: 20191005
  Serious: No
  Sender: FDA-Public Use
  Company Number: US-SA-2019SA256385

PATIENT
  Age: 11 Year
  Sex: Female

DRUGS (1)
  1. XYZAL ALLERGY 24HR [Suspect]
     Active Substance: LEVOCETIRIZINE DIHYDROCHLORIDE
     Indication: HYPERSENSITIVITY
     Dosage: 5 MG, QD
     Route: 048

REACTIONS (8)
  - Product use issue [Unknown]
  - Blood pressure increased [Recovering/Resolving]
  - Rash erythematous [Recovering/Resolving]
  - Myalgia [Recovering/Resolving]
  - Unevaluable event [Recovering/Resolving]
  - Arthralgia [Recovering/Resolving]
  - Mass [Recovering/Resolving]
  - Heart rate increased [Recovering/Resolving]
